FAERS Safety Report 23896778 (Version 1)
Quarter: 2024Q2

REPORT INFORMATION
  Report Type: Spontaneous
  Country: AE (occurrence: AE)
  Receive Date: 20240524
  Receipt Date: 20240524
  Transmission Date: 20240716
  Serious: Yes (Other)
  Sender: FDA-Public Use
  Company Number: AE-BAXTER-2024BAX018431

PATIENT
  Age: 35 Year
  Sex: Male
  Weight: 77 kg

DRUGS (6)
  1. PROPOFOL [Suspect]
     Active Substance: PROPOFOL
     Indication: Sedative therapy
     Dosage: (PROVIVE 1%) (PROPOFOL INJECTION BP 1% W/V)) (20 ML) 200+100+100 AT AN UNSPECIFIED FREQUENCY
     Route: 042
     Dates: start: 20240207
  2. PROPOFOL [Suspect]
     Active Substance: PROPOFOL
     Indication: Colonoscopy
  3. KETAMINE [Suspect]
     Active Substance: KETAMINE
     Indication: Sedative therapy
     Dosage: 50 MILLIGRAM (MG) AT AN UNSPECIFIED FREQUENCY
     Route: 042
     Dates: start: 20240207
  4. KETAMINE [Suspect]
     Active Substance: KETAMINE
     Indication: Colonoscopy
  5. MIDAZOLAM [Suspect]
     Active Substance: MIDAZOLAM
     Indication: Sedative therapy
     Dosage: 2 MILLIGRAM (MG) AT AN UNSPECIFIED FREQUENCY
     Route: 042
     Dates: start: 20240207
  6. MIDAZOLAM [Suspect]
     Active Substance: MIDAZOLAM
     Indication: Colonoscopy

REACTIONS (2)
  - Laryngospasm [Unknown]
  - Therapeutic product effect incomplete [Unknown]
